FAERS Safety Report 8029732-3 (Version None)
Quarter: 2012Q1

REPORT INFORMATION
  Report Type: 
  Country: None (occurrence: None)
  Receive Date: 20120109
  Receipt Date: 20111230
  Transmission Date: 20120608
  Serious: Yes (Other)
  Sender: FDA-Public Use
  Company Number: US-BAYER-2011-029611

PATIENT
  Age: 19 Year
  Sex: Female

DRUGS (6)
  1. PHENERGAN [Concomitant]
  2. YASMIN [Suspect]
     Dosage: UNK
  3. YAZ [Suspect]
  4. ZOLOFT [Concomitant]
  5. ALBUTEROL [Concomitant]
  6. IMITREX [Concomitant]

REACTIONS (8)
  - PAIN [None]
  - EMOTIONAL DISTRESS [None]
  - FEAR [None]
  - ANXIETY [None]
  - GALLBLADDER DISORDER [None]
  - INJURY [None]
  - CHOLECYSTITIS CHRONIC [None]
  - PSYCHOLOGICAL TRAUMA [None]
